FAERS Safety Report 12688186 (Version 1)
Quarter: 2016Q3

REPORT INFORMATION
  Report Type: Report from Study
  Country: TH (occurrence: TH)
  Receive Date: 20160826
  Receipt Date: 20160826
  Transmission Date: 20161109
  Serious: Yes (Death)
  Sender: FDA-Public Use
  Company Number: TH-CIPLA LTD.-2016TH17148

PATIENT

DRUGS (8)
  1. TENOFOVIR DISOPROXIL FUMARATE. [Suspect]
     Active Substance: TENOFOVIR DISOPROXIL FUMARATE
     Indication: HIV INFECTION
     Dosage: UNK
     Route: 065
  2. VITAMIN B COMPLEX [Concomitant]
     Active Substance: CYANOCOBALAMIN\DEXPANTHENOL\NIACINAMIDE\PYRIDOXINE HYDROCHLORIDE\RIBOFLAVIN 5^-PHOSPHATE SODIUM\THIAMINE HYDROCHLORIDE\VITAMIN B COMPLEX
     Dosage: 1 TAB, QD
     Route: 048
     Dates: start: 20120522
  3. ATAZANAVIR/ RITONAVIR [Suspect]
     Active Substance: ATAZANAVIR\RITONAVIR
     Indication: HIV INFECTION
     Dosage: 300MG/100MG, QD
     Route: 048
  4. CEPGALEXIN [Concomitant]
     Dosage: 500 MG, QID
     Route: 048
     Dates: start: 20120806, end: 20120813
  5. DICLOFENAC [Concomitant]
     Active Substance: DICLOFENAC
     Dosage: 25 MG, TID
     Route: 048
     Dates: start: 20120806, end: 20120813
  6. FOLIC ACID. [Concomitant]
     Active Substance: FOLIC ACID
     Dosage: 1 TAB, QD
     Route: 048
     Dates: start: 20120522
  7. LAMIVUDINE. [Suspect]
     Active Substance: LAMIVUDINE
     Indication: HIV INFECTION
     Dosage: UNK
     Route: 065
  8. TOLPERISONE [Concomitant]
     Active Substance: TOLPERISONE
     Dosage: 50 MG, TID
     Route: 048
     Dates: start: 20120806, end: 20120813

REACTIONS (1)
  - Lymphoma [Fatal]

NARRATIVE: CASE EVENT DATE: 20120702
